FAERS Safety Report 20447543 (Version 1)
Quarter: 2022Q1

REPORT INFORMATION
  Report Type: Spontaneous
  Country: US (occurrence: US)
  Receive Date: 20220209
  Receipt Date: 20220209
  Transmission Date: 20220423
  Serious: No
  Sender: FDA-Public Use
  Company Number: US-SPECGX-T202101123

PATIENT
  Sex: Female

DRUGS (6)
  1. ANAFRANIL [Suspect]
     Active Substance: CLOMIPRAMINE HYDROCHLORIDE
     Indication: Antidepressant therapy
     Dosage: VERY LOW DOSE
     Route: 065
  2. ANAFRANIL [Suspect]
     Active Substance: CLOMIPRAMINE HYDROCHLORIDE
     Indication: Depression
  3. FIRDAPSE [Suspect]
     Active Substance: AMIFAMPRIDINE PHOSPHATE
     Indication: Product used for unknown indication
     Dosage: UNK
     Route: 065
  4. ZOLOFT [Suspect]
     Active Substance: SERTRALINE HYDROCHLORIDE
     Indication: Antidepressant therapy
     Dosage: UNK
     Route: 065
  5. LATUDA [Suspect]
     Active Substance: LURASIDONE HYDROCHLORIDE
     Indication: Antidepressant therapy
     Dosage: VERY LOW DOSE
     Route: 065
  6. KLONOPIN [Suspect]
     Active Substance: CLONAZEPAM
     Indication: Antidepressant therapy
     Dosage: VERY LOW DOSE
     Route: 065

REACTIONS (2)
  - Asthenia [Unknown]
  - Drug interaction [Unknown]
